FAERS Safety Report 10467844 (Version 1)
Quarter: 2014Q3

REPORT INFORMATION
  Report Type: Report from Study
  Country: CA (occurrence: CA)
  Receive Date: 20140922
  Receipt Date: 20140922
  Transmission Date: 20150326
  Serious: Yes (Other)
  Sender: FDA-Public Use
  Company Number: CA-BRISTOL-MYERS SQUIBB COMPANY-21414776

PATIENT
  Age: 62 Year
  Sex: Female

DRUGS (11)
  1. ALVESCO [Concomitant]
     Active Substance: CICLESONIDE
  2. ORENCIA [Suspect]
     Active Substance: ABATACEPT
     Indication: RHEUMATOID ARTHRITIS
     Dosage: ONGOING
     Route: 042
     Dates: start: 20080904
  3. SINGULAIR [Concomitant]
     Active Substance: MONTELUKAST SODIUM
  4. RAMIPRIL. [Concomitant]
     Active Substance: RAMIPRIL
  5. PLAVIX [Concomitant]
     Active Substance: CLOPIDOGREL BISULFATE
  6. ADALAT [Concomitant]
     Active Substance: NIFEDIPINE
  7. CLONAZEPAM. [Concomitant]
     Active Substance: CLONAZEPAM
  8. SALBUTAMOL [Concomitant]
     Active Substance: ALBUTEROL
  9. SYNTHROID [Concomitant]
     Active Substance: LEVOTHYROXINE SODIUM
  10. NOVORAPID [Concomitant]
     Active Substance: INSULIN ASPART
  11. LANTUS [Concomitant]
     Active Substance: INSULIN GLARGINE

REACTIONS (4)
  - Fall [Unknown]
  - Dizziness [Unknown]
  - Nausea [Unknown]
  - Ankle fracture [Unknown]

NARRATIVE: CASE EVENT DATE: 20140901
